FAERS Safety Report 19167500 (Version 3)
Quarter: 2023Q1

REPORT INFORMATION
  Report Type: Report from Study
  Country: JP (occurrence: JP)
  Receive Date: 20210422
  Receipt Date: 20230209
  Transmission Date: 20230418
  Serious: Yes (Death, Life-Threatening, Disabling, Other)
  Sender: FDA-Public Use
  Company Number: JP-RECORDATI RARE DISEASE INC.-2021001458

PATIENT
  Age: 0 Year
  Sex: Male
  Weight: .858 kg

DRUGS (26)
  1. NEOPROFEN [Suspect]
     Active Substance: IBUPROFEN LYSINE
     Indication: Patent ductus arteriosus
     Dosage: 8 MILLIGRAM, QD
     Route: 042
     Dates: start: 20190630, end: 20190630
  2. NEOPROFEN [Suspect]
     Active Substance: IBUPROFEN LYSINE
     Dosage: 4 MILLIGRAM, QD
     Route: 042
     Dates: start: 20190701, end: 20190701
  3. NEOPROFEN [Suspect]
     Active Substance: IBUPROFEN LYSINE
     Dosage: 4 MILLIGRAM, QD
     Route: 042
     Dates: start: 20190702, end: 20190702
  4. LACTOBACILLUS CASEI [Concomitant]
     Active Substance: LACTOBACILLUS CASEI
     Indication: Enteral nutrition
     Dosage: UNK UNK, UNK
     Route: 048
     Dates: start: 20190630, end: 20190702
  5. CALCIUM GLUCONATE [Concomitant]
     Active Substance: CALCIUM GLUCONATE
     Indication: Hypocalcaemia
     Dosage: UNK
     Route: 042
     Dates: start: 20190629, end: 20190702
  6. DOPAMINE HYDROCHLORIDE [Concomitant]
     Active Substance: DOPAMINE HYDROCHLORIDE
     Indication: Patent ductus arteriosus
     Dosage: UNK UNK, UNK
     Route: 042
     Dates: start: 20190629, end: 20190702
  7. DOPAMINE HYDROCHLORIDE [Concomitant]
     Active Substance: DOPAMINE HYDROCHLORIDE
     Indication: Hypotension
  8. DOBUTAMINE HYDROCHLORIDE [Concomitant]
     Active Substance: DOBUTAMINE HYDROCHLORIDE
     Indication: Patent ductus arteriosus
     Dosage: UNK UNK, UNK
     Route: 042
     Dates: start: 20190629, end: 20190702
  9. DOBUTAMINE HYDROCHLORIDE [Concomitant]
     Active Substance: DOBUTAMINE HYDROCHLORIDE
     Indication: Hypotension
  10. AMPICILLIN SODIUM [Concomitant]
     Active Substance: AMPICILLIN SODIUM
     Indication: Infection prophylaxis
     Dosage: UNK UNK, UNK
     Route: 042
     Dates: start: 20190629, end: 20190702
  11. AMIKACIN SULFATE [Concomitant]
     Active Substance: AMIKACIN SULFATE
     Indication: Infection prophylaxis
     Dosage: UNK
     Route: 065
     Dates: start: 20190629, end: 20190702
  12. FENTANYL CITRATE [Concomitant]
     Active Substance: FENTANYL CITRATE
     Indication: Intraventricular haemorrhage
     Dosage: UNK UNK, UNK
     Route: 042
     Dates: start: 20190629, end: 20190702
  13. HUMULIN R [Concomitant]
     Active Substance: INSULIN HUMAN
     Indication: Hyperkalaemia
     Dosage: UNK UNK, UNK
     Route: 042
     Dates: start: 20190629, end: 20190701
  14. MICAFUNGIN SODIUM [Concomitant]
     Active Substance: MICAFUNGIN SODIUM
     Indication: Infection prophylaxis
     Dosage: UNK UNK, UNK
     Route: 042
     Dates: start: 20190629, end: 20190703
  15. FUROSEMIDE [Concomitant]
     Active Substance: FUROSEMIDE
     Indication: Patent ductus arteriosus
     Dosage: UNK UNK, UNK
     Route: 042
     Dates: start: 20190629, end: 20190703
  16. FUROSEMIDE [Concomitant]
     Active Substance: FUROSEMIDE
     Indication: Renal impairment
  17. MIDAZOLAM [Concomitant]
     Active Substance: MIDAZOLAM
     Indication: Haemorrhage intracranial
     Dosage: UNK UNK, UNK
     Route: 042
     Dates: start: 20190630, end: 20190702
  18. LENOGRASTIM [Concomitant]
     Active Substance: LENOGRASTIM
     Indication: Neutrophil count decreased
     Dosage: UNK UNK, UNK
     Route: 042
     Dates: start: 20190701, end: 20190702
  19. MEYLON [Concomitant]
     Active Substance: SODIUM BICARBONATE
     Indication: Metabolic acidosis
     Dosage: UNK UNK, UNK
     Route: 042
     Dates: start: 20190701, end: 20190702
  20. VENILON [Concomitant]
     Active Substance: HUMAN IMMUNOGLOBULIN G
     Indication: Hypogammaglobulinaemia
     Dosage: UNK UNK, UNK
     Route: 042
     Dates: start: 20190701, end: 20190701
  21. VANCOMYCIN HYDROCHLORIDE [Concomitant]
     Active Substance: VANCOMYCIN HYDROCHLORIDE
     Indication: Sepsis
     Dosage: UNK UNK, UNK
     Route: 042
     Dates: start: 20190702, end: 20190703
  22. MEROPENEM [Concomitant]
     Active Substance: MEROPENEM
     Indication: Sepsis
     Dosage: UNK UNK, UNK
     Route: 042
     Dates: start: 20190702, end: 20190703
  23. SAXIZON [Concomitant]
     Active Substance: HYDROCORTISONE SODIUM SUCCINATE
     Indication: Sepsis
     Dosage: UNK UNK, UNK
     Route: 042
     Dates: start: 20190702, end: 20190702
  24. MANNITOL [Concomitant]
     Active Substance: MANNITOL
     Indication: Haemorrhage intracranial
     Dosage: UNK UNK, UNK
     Route: 042
     Dates: start: 20190702, end: 20190703
  25. PHENOBARBITAL SODIUM [Concomitant]
     Active Substance: PHENOBARBITAL SODIUM
     Indication: Haemorrhage intracranial
     Dosage: UNK UNK, UNK
     Route: 042
     Dates: start: 20190702, end: 20190703
  26. EPINEPHRINE [Concomitant]
     Active Substance: EPINEPHRINE
     Indication: Sepsis
     Dosage: UNK UNK, UNK
     Route: 042
     Dates: start: 20190702, end: 20190703

REACTIONS (7)
  - Metabolic acidosis [Not Recovered/Not Resolved]
  - Neutrophil count decreased [Recovering/Resolving]
  - Platelet count decreased [Not Recovered/Not Resolved]
  - Hypernatraemia [Not Recovered/Not Resolved]
  - Sepsis [Fatal]
  - Anaemia [Recovering/Resolving]
  - Intraventricular haemorrhage [Not Recovered/Not Resolved]

NARRATIVE: CASE EVENT DATE: 20190701
